FAERS Safety Report 6822339-2 (Version None)
Quarter: 2010Q3

REPORT INFORMATION
  Report Type: 
  Country: None (occurrence: None)
  Receive Date: 20100707
  Receipt Date: 20100707
  Transmission Date: 20110219
  Serious: Yes (Life-Threatening, Hospitalization, Disabling)
  Sender: FDA-Public Use
  Company Number: None

PATIENT
  Age: 78 Year
  Sex: Female
  Weight: 76.2497 kg

DRUGS (15)
  1. FERAHEME [Suspect]
     Indication: IRON DEFICIENCY ANAEMIA
     Dosage: 510MG/17 ML WEEKLY X 4 IV BOLUS
     Route: 040
     Dates: start: 20100519, end: 20100609
  2. FERAHEME [Suspect]
     Indication: NEPHROPATHY
     Dosage: 510MG/17 ML WEEKLY X 4 IV BOLUS
     Route: 040
     Dates: start: 20100519, end: 20100609
  3. PLAVIX [Concomitant]
  4. ASPIRIN [Concomitant]
  5. LASIX [Concomitant]
  6. METOPROLOL [Concomitant]
  7. PROTONIX [Concomitant]
  8. TRAMADOL [Concomitant]
  9. OMEGA-3 POLYUNSATURATED FATTY ACIDS [Concomitant]
  10. DIOVAN [Concomitant]
  11. LOTRISONE [Concomitant]
  12. ISOSORBIDE MONONITRATE [Concomitant]
  13. NITROGLYCERIN [Concomitant]
  14. ZOCOR [Concomitant]
  15. TRAVOPROST OPTHALMIC SOLUTION [Concomitant]

REACTIONS (1)
  - DRUG EFFECT DECREASED [None]
